FAERS Safety Report 15247198 (Version 2)
Quarter: 2018Q3

REPORT INFORMATION
  Report Type: Spontaneous
  Country: JP (occurrence: JP)
  Receive Date: 20180807
  Receipt Date: 20180816
  Transmission Date: 20181010
  Serious: Yes (Life-Threatening, Hospitalization)
  Sender: FDA-Public Use
  Company Number: JP-UCBSA-2018031172

PATIENT
  Age: 42 Year
  Sex: Female
  Weight: 47 kg

DRUGS (10)
  1. AZULFIDINE EN?TABS [Suspect]
     Active Substance: SULFASALAZINE
     Indication: RHEUMATOID ARTHRITIS
     Dosage: 500 MG, 2X/DAY (BID)
     Route: 048
     Dates: start: 20180608, end: 20180706
  2. PIPERACILLIN AND TAZOBACTAM [Concomitant]
     Active Substance: PIPERACILLIN SODIUM\TAZOBACTAM SODIUM
     Indication: PRODUCT USED FOR UNKNOWN INDICATION
  3. METRONIDAZOLE. [Concomitant]
     Active Substance: METRONIDAZOLE
     Indication: PRODUCT USED FOR UNKNOWN INDICATION
     Dosage: UNK
  4. POLAPREZINC [Concomitant]
     Active Substance: POLAPREZINC
     Indication: GASTROOESOPHAGEAL REFLUX DISEASE
     Dosage: 75 MG, 2X/DAY (BID)
     Route: 048
     Dates: start: 20180622, end: 20180706
  5. CIMZIA [Suspect]
     Active Substance: CERTOLIZUMAB PEGOL
     Dosage: 400 MG, EV 2 WEEKS(QOW)
     Route: 058
     Dates: start: 20180719
  6. LANSOPRAZOLE. [Concomitant]
     Active Substance: LANSOPRAZOLE
     Indication: GASTROOESOPHAGEAL REFLUX DISEASE
     Dosage: 15 MG, ONCE DAILY (QD)
     Route: 048
     Dates: start: 20180523, end: 20180706
  7. CIMZIA [Suspect]
     Active Substance: CERTOLIZUMAB PEGOL
     Indication: RHEUMATOID ARTHRITIS
     Dosage: 400 MG, EV 2 WEEKS(QOW)
     Route: 058
     Dates: start: 20180525, end: 20180706
  8. PREDONINE [Concomitant]
     Active Substance: PREDNISOLONE
     Indication: RHEUMATOID ARTHRITIS
     Dosage: 5 MG, ONCE DAILY (QD)
     Route: 048
     Dates: start: 20180523
  9. PREDNISOLONE. [Concomitant]
     Active Substance: PREDNISOLONE
     Indication: RHEUMATOID ARTHRITIS
     Dosage: 2.5 MG, ONCE DAILY (QD)
     Route: 048
     Dates: start: 20180622
  10. LENOGRASTIM [Concomitant]
     Active Substance: LENOGRASTIM
     Indication: PRODUCT USED FOR UNKNOWN INDICATION

REACTIONS (2)
  - Febrile neutropenia [Recovered/Resolved]
  - Hepatic function abnormal [Recovering/Resolving]

NARRATIVE: CASE EVENT DATE: 20180706
